FAERS Safety Report 22118109 (Version 1)
Quarter: 2023Q1

REPORT INFORMATION
  Report Type: Spontaneous
  Country: US (occurrence: US)
  Receive Date: 20230321
  Receipt Date: 20230321
  Transmission Date: 20230418
  Serious: Yes (Other)
  Sender: FDA-Public Use
  Company Number: US-NOVOPROD-1037182

PATIENT
  Sex: Female

DRUGS (1)
  1. RYBELSUS [Suspect]
     Active Substance: SEMAGLUTIDE
     Indication: Product used for unknown indication
     Dosage: 14 MG
     Route: 048
     Dates: start: 202204

REACTIONS (2)
  - Viral infection [Not Recovered/Not Resolved]
  - Oral surgery [Unknown]

NARRATIVE: CASE EVENT DATE: 20230304
